FAERS Safety Report 5558913-3 (Version None)
Quarter: 2007Q4

REPORT INFORMATION
  Report Type: 
  Country: None (occurrence: None)
  Receive Date: 20071214
  Receipt Date: 20071204
  Transmission Date: 20080405
  Serious: Yes (Other)
  Sender: FDA-Public Use
  Company Number: CA-PFIZER INC-2007103836

PATIENT
  Age: 48 Year
  Sex: Female

DRUGS (6)
  1. CHAMPIX [Suspect]
     Indication: SMOKING CESSATION THERAPY
     Route: 048
     Dates: start: 20071025, end: 20071201
  2. ALCOHOL [Interacting]
     Indication: ALCOHOL USE
     Route: 048
  3. ATORVASTATIN [Concomitant]
  4. PREVACID [Concomitant]
  5. PROGESTERON [Concomitant]
  6. ESTROGENS [Concomitant]

REACTIONS (2)
  - DRUG INTERACTION [None]
  - LOSS OF CONSCIOUSNESS [None]
